FAERS Safety Report 22212985 (Version 1)
Quarter: 2023Q2

REPORT INFORMATION
  Report Type: Spontaneous
  Country: NO (occurrence: NO)
  Receive Date: 20230414
  Receipt Date: 20230414
  Transmission Date: 20230721
  Serious: Yes (Disabling, Other)
  Sender: FDA-Public Use
  Company Number: NO-EXELIXIS-CABO-23062740

PATIENT
  Age: 69 Year
  Sex: Male

DRUGS (4)
  1. CABOMETYX [Suspect]
     Active Substance: CABOZANTINIB S-MALATE
     Indication: Renal cancer
     Dosage: 40 MG/20 MG EVERY SECOND DAY
     Route: 048
     Dates: start: 20210701, end: 20230130
  2. CARVEDILOL [Concomitant]
     Active Substance: CARVEDILOL
     Indication: Hypertension
     Dosage: CONTINUED USE OF MEDICINAL PRODUCT
     Route: 048
     Dates: start: 20210401
  3. LEVOTHYROXINE SODIUM [Concomitant]
     Active Substance: LEVOTHYROXINE SODIUM
     Indication: Hypertension
     Dosage: CONTINUED USE OF MEDICINAL PRODUCT
     Route: 048
     Dates: start: 20230101
  4. CORTISONE [Concomitant]
     Active Substance: CORTISONE
     Indication: Adrenal insufficiency
     Dosage: CONTINUED USE OF MEDICINAL PRODUCT
     Route: 048
     Dates: start: 20210327

REACTIONS (3)
  - Mucosal hypertrophy [Recovering/Resolving]
  - Pseudomembranous colitis [Recovering/Resolving]
  - Diarrhoea [Recovering/Resolving]

NARRATIVE: CASE EVENT DATE: 20220527
